FAERS Safety Report 10410518 (Version 2)
Quarter: 2014Q3

REPORT INFORMATION
  Report Type: Spontaneous
  Country: US (occurrence: US)
  Receive Date: 20140826
  Receipt Date: 20140826
  Transmission Date: 20150326
  Serious: No
  Sender: FDA-Public Use
  Company Number: US-BRISTOL-MYERS SQUIBB COMPANY-19163765

PATIENT
  Age: 44 Year
  Sex: Female
  Weight: 70.29 kg

DRUGS (3)
  1. XYLOCAINE [Suspect]
     Active Substance: LIDOCAINE HYDROCHLORIDE
  2. KENALOG-40 [Suspect]
     Active Substance: TRIAMCINOLONE ACETONIDE
     Indication: MIGRAINE
     Route: 051
     Dates: start: 20130711, end: 20130711
  3. MARCAINE [Suspect]
     Active Substance: BUPIVACAINE HYDROCHLORIDE

REACTIONS (11)
  - Hypoaesthesia [Not Recovered/Not Resolved]
  - Muscle spasms [Unknown]
  - Hypertension [Recovered/Resolved]
  - Dizziness [Unknown]
  - Nerve block [Unknown]
  - Occipital neuralgia [Unknown]
  - Flushing [Unknown]
  - Headache [Recovering/Resolving]
  - Paraesthesia [Recovering/Resolving]
  - Blood potassium decreased [Unknown]
  - Weight decreased [Unknown]

NARRATIVE: CASE EVENT DATE: 201307
